FAERS Safety Report 25307220 (Version 1)
Quarter: 2025Q2

REPORT INFORMATION
  Report Type: Spontaneous
  Country: FR (occurrence: FR)
  Receive Date: 20250513
  Receipt Date: 20250513
  Transmission Date: 20250717
  Serious: Yes (Other)
  Sender: AUROBINDO
  Company Number: FR-BIOGARAN-B25000639

PATIENT
  Age: 87 Year
  Sex: Female
  Weight: 58 kg

DRUGS (3)
  1. BISOPROLOL [Suspect]
     Active Substance: BISOPROLOL
     Indication: Hypertension
     Dosage: 1 DOSAGE FORM, ONCE A DAY (1 DOSAGE FORM, QD)
     Route: 048
  2. FUROSEMIDE [Suspect]
     Active Substance: FUROSEMIDE
     Indication: Chest pain
     Dosage: 1 DOSAGE FORM, ONCE A DAY (1 DOSAGE FORM, QD)
     Route: 048
     Dates: start: 202503
  3. JARDIANCE [Suspect]
     Active Substance: EMPAGLIFLOZIN
     Indication: Product used for unknown indication
     Route: 065

REACTIONS (14)
  - Cardiac failure [Unknown]
  - Angina pectoris [Unknown]
  - Hypokalaemia [Unknown]
  - Pelvic organ prolapse [Unknown]
  - Heart rate decreased [Unknown]
  - Peripheral coldness [Unknown]
  - Insomnia [Unknown]
  - Fatigue [Unknown]
  - Asthenia [Unknown]
  - Polyuria [Not Recovered/Not Resolved]
  - Diarrhoea [Not Recovered/Not Resolved]
  - Urinary incontinence [Unknown]
  - Intentional product use issue [Unknown]
  - Intentional product misuse [Unknown]

NARRATIVE: CASE EVENT DATE: 20250301
